FAERS Safety Report 7533751-0 (Version None)
Quarter: 2011Q2

REPORT INFORMATION
  Report Type: 
  Country: None (occurrence: None)
  Receive Date: 20110608
  Receipt Date: 20110606
  Transmission Date: 20111010
  Serious: Yes (Other)
  Sender: FDA-Public Use
  Company Number: CA-TEVA-284749USA

PATIENT
  Age: 60 Year
  Sex: Female

DRUGS (3)
  1. CISPLATIN [Suspect]
     Indication: COLON CANCER
  2. FLUOROURACIL [Concomitant]
     Indication: COLON CANCER
  3. LEUCOVORIN CALCIUM [Concomitant]
     Indication: COLON CANCER

REACTIONS (1)
  - AORTIC THROMBOSIS [None]
